FAERS Safety Report 6753420-4 (Version None)
Quarter: 2010Q2

REPORT INFORMATION
  Report Type: 
  Country: None (occurrence: None)
  Receive Date: 20100603
  Receipt Date: 20100526
  Transmission Date: 20101027
  Serious: Yes (Hospitalization)
  Sender: FDA-Public Use
  Company Number: US-SANOFI-AVENTIS-2010SA022402

PATIENT
  Age: 45 Year
  Sex: Female
  Weight: 63.04 kg

DRUGS (4)
  1. LANTUS [Suspect]
     Indication: TYPE 1 DIABETES MELLITUS
     Dosage: EVERY EVENING AT BEDTIME (8PM) DOSE:26 UNIT(S)
     Route: 058
     Dates: start: 20050101
  2. LANTUS [Suspect]
     Dosage: EVERY EVENING AT BEDTIME (8PM) DOSE:26 UNIT(S)
     Route: 058
     Dates: start: 20050101
  3. SOLOSTAR [Suspect]
     Indication: TYPE 1 DIABETES MELLITUS
     Dosage: DOSE:26 UNIT(S)
     Dates: start: 20050101
  4. NOVOLOG [Concomitant]
     Dosage: 9 UNITS IN THE MORNING, 6 UNITS AT LUNCH AND 8 TO 9 UNITS AT DINNER
     Dates: start: 19710401

REACTIONS (1)
  - INTESTINAL PERFORATION [None]
